FAERS Safety Report 16181778 (Version 3)
Quarter: 2019Q4

REPORT INFORMATION
  Report Type: Spontaneous
  Country: US (occurrence: US)
  Receive Date: 20190410
  Receipt Date: 20191114
  Transmission Date: 20200122
  Serious: No
  Sender: FDA-Public Use
  Company Number: US-009507513-1904USA004656

PATIENT
  Sex: Female

DRUGS (4)
  1. ASMANEX [Suspect]
     Active Substance: MOMETASONE FUROATE
     Dosage: UNK UNK, BID
     Route: 055
     Dates: start: 2015
  2. ASMANEX [Suspect]
     Active Substance: MOMETASONE FUROATE
     Dosage: 1 PUFF/ TWICE DAILY
     Route: 055
     Dates: start: 20190319, end: 20190409
  3. ASMANEX [Suspect]
     Active Substance: MOMETASONE FUROATE
     Dosage: 1 PUFF/ TWICE DAILY
     Route: 055
     Dates: start: 201904
  4. ASMANEX [Suspect]
     Active Substance: MOMETASONE FUROATE
     Dosage: 2 PUFFS IN MORNING AND 2 PUFFS IN EVENING
     Route: 055
     Dates: start: 20191024

REACTIONS (7)
  - Poor quality device used [Unknown]
  - Incorrect dose administered [Unknown]
  - Product quality issue [Unknown]
  - Product dose omission [Unknown]
  - Product dose omission [Unknown]
  - Malaise [Unknown]
  - No adverse event [Unknown]

NARRATIVE: CASE EVENT DATE: 20190408
